FAERS Safety Report 6990326-X (Version None)
Quarter: 2010Q3

REPORT INFORMATION
  Report Type: 
  Country: None (occurrence: None)
  Receive Date: 20100916
  Receipt Date: 20100603
  Transmission Date: 20110219
  Serious: Yes (Other)
  Sender: FDA-Public Use
  Company Number: HU-PFIZER INC-2010030802

PATIENT
  Age: 63 Year
  Sex: Female

DRUGS (2)
  1. LYRICA [Suspect]
     Indication: POLYNEUROPATHY
     Dosage: 300 MG, 1X/DAY
     Route: 048
     Dates: start: 20091201
  2. NOOTROPIL [Concomitant]
     Dosage: UNK
     Dates: end: 20100101

REACTIONS (3)
  - HYPOTENSION [None]
  - MOOD SWINGS [None]
  - TACHYCARDIA [None]
